FAERS Safety Report 8204556-2 (Version None)
Quarter: 2012Q1

REPORT INFORMATION
  Report Type: 
  Country: None (occurrence: None)
  Receive Date: 20120313
  Receipt Date: 20120308
  Transmission Date: 20120608
  Serious: Yes (Other)
  Sender: FDA-Public Use
  Company Number: US-PFIZER INC-2012063010

PATIENT
  Sex: Male
  Weight: 23 kg

DRUGS (9)
  1. PROPRANOLOL [Concomitant]
     Indication: HYPERTENSION
     Dosage: UNK
  2. VITAMIN E [Concomitant]
     Dosage: UNK
  3. GENOTROPIN [Suspect]
     Indication: GROWTH HORMONE DEFICIENCY
     Dosage: UNK
  4. MEPHYTON [Concomitant]
     Dosage: UNK
  5. ASCORBIC ACID [Concomitant]
     Dosage: UNK
  6. CALCIFEROL [Concomitant]
     Dosage: UNK
  7. PROGRAF [Suspect]
     Indication: PROPHYLAXIS AGAINST TRANSPLANT REJECTION
     Dosage: UNK
  8. ALFACALCIDOL [Concomitant]
     Dosage: UNK
  9. MULTI-VITAMINS [Concomitant]
     Dosage: UNK

REACTIONS (3)
  - RENAL IMPAIRMENT [None]
  - DRUG INEFFECTIVE [None]
  - HEPATIC ENZYME INCREASED [None]
